FAERS Safety Report 6170775-2 (Version None)
Quarter: 2009Q2

REPORT INFORMATION
  Report Type: 
  Country: None (occurrence: None)
  Receive Date: 20090427
  Receipt Date: 20090415
  Transmission Date: 20091009
  Serious: Yes (Other)
  Sender: FDA-Public Use
  Company Number: 2009003707

PATIENT
  Sex: Female
  Weight: 77.1115 kg

DRUGS (11)
  1. PROVIGIL [Suspect]
     Dosage: 300 MG (100 MG, 3 IN 1 D), ORAL
     Route: 048
     Dates: start: 20070101
  2. DIAZEPAM [Concomitant]
  3. BACLOFEN [Concomitant]
  4. CEPHALEXIN [Concomitant]
  5. DITROPAN XL [Concomitant]
  6. FUROSEMIDE [Concomitant]
  7. DIFLUCAN [Concomitant]
  8. ZYRTEC [Concomitant]
  9. NIFEREX (IRON) [Concomitant]
  10. METFORMIN HCL [Concomitant]
  11. CLONIDINE [Concomitant]

REACTIONS (5)
  - BLOOD GLUCOSE ABNORMAL [None]
  - BLOOD PRESSURE ABNORMAL [None]
  - DRUG INEFFECTIVE [None]
  - INCORRECT DOSE ADMINISTERED [None]
  - LOSS OF CONSCIOUSNESS [None]
